FAERS Safety Report 12378789 (Version 4)
Quarter: 2016Q2

REPORT INFORMATION
  Report Type: Spontaneous
  Country: JP (occurrence: JP)
  Receive Date: 20160517
  Receipt Date: 20160630
  Transmission Date: 20160815
  Serious: Yes (Death)
  Sender: FDA-Public Use
  Company Number: JP-JNJFOC-20160515078

PATIENT
  Age: 55 Year
  Sex: Male
  Weight: 74 kg

DRUGS (8)
  1. RISPERIDONE. [Concomitant]
     Active Substance: RISPERIDONE
     Indication: SCHIZOPHRENIA
     Dosage: BEFORE SLEEPING
     Route: 048
     Dates: start: 20140107, end: 20160426
  2. LEVOMEPROMAZINE MALEATE [Concomitant]
     Active Substance: LEVOMEPROMAZINE MALEATE
     Indication: SCHIZOPHRENIA
     Dosage: BEFORE SLEEPING
     Route: 048
     Dates: start: 20140107, end: 20160426
  3. BORIC ACID [Concomitant]
     Active Substance: BORIC ACID
     Indication: LACRIMATION DECREASED
     Route: 047
     Dates: start: 20140513, end: 20160412
  4. XEPLION [Suspect]
     Active Substance: PALIPERIDONE PALMITATE
     Indication: SCHIZOPHRENIA
     Route: 030
     Dates: start: 20140107, end: 20160412
  5. TASMOLIN [Concomitant]
     Active Substance: BIPERIDEN
     Indication: PARKINSONISM
     Dosage: 2MG AFTER LUNCH, 1MG BEFORE SLEEPING
     Route: 048
     Dates: start: 20140107, end: 20160426
  6. HALCION [Concomitant]
     Active Substance: TRIAZOLAM
     Indication: INSOMNIA
     Route: 048
     Dates: start: 20140107, end: 20140228
  7. REBAMIPIDE [Concomitant]
     Active Substance: REBAMIPIDE
     Indication: CHRONIC GASTRITIS
     Route: 048
     Dates: start: 20140107, end: 20140228
  8. LOXOPROFEN [Concomitant]
     Active Substance: LOXOPROFEN
     Indication: CERVICOBRACHIAL SYNDROME
     Route: 048
     Dates: start: 20140107, end: 20140228

REACTIONS (3)
  - Temperature regulation disorder [Unknown]
  - Death [Fatal]
  - Weight increased [Unknown]

NARRATIVE: CASE EVENT DATE: 20151110
